FAERS Safety Report 24184913 (Version 1)
Quarter: 2024Q3

REPORT INFORMATION
  Report Type: Spontaneous
  Country: US (occurrence: None)
  Receive Date: 20240807
  Receipt Date: 20240807
  Transmission Date: 20241016
  Serious: No
  Sender: Public
  Company Number: None

PATIENT
  Age: 73 Year
  Sex: Female

DRUGS (3)
  1. OTEZLA [Suspect]
     Active Substance: APREMILAST
  2. METOPROLOL [Concomitant]
  3. PROCET [Concomitant]
     Dosage: FREQUENCY : TWICE A DAY;?
     Route: 048
     Dates: start: 202404

REACTIONS (1)
  - Dyspnoea [None]
